FAERS Safety Report 16337710 (Version 4)
Quarter: 2020Q2

REPORT INFORMATION
  Report Type: Spontaneous
  Country: US (occurrence: US)
  Receive Date: 20190521
  Receipt Date: 20200511
  Transmission Date: 20200713
  Serious: Yes (Congenital Anomaly, Other)
  Sender: FDA-Public Use
  Company Number: PHEH2019US021547

PATIENT
  Age: 3 Year
  Sex: Female

DRUGS (2)
  1. ZOFRAN [Suspect]
     Active Substance: ONDANSETRON HYDROCHLORIDE
     Indication: FOETAL EXPOSURE DURING PREGNANCY
     Route: 064
  2. ONDANSETRON. [Suspect]
     Active Substance: ONDANSETRON
     Indication: FOETAL EXPOSURE DURING PREGNANCY
     Dosage: MOTHER DOSE: 08 MG, Q8H
     Route: 064

REACTIONS (17)
  - Gross motor delay [Unknown]
  - Foetal exposure during pregnancy [Unknown]
  - Deformity [Unknown]
  - Injury [Unknown]
  - Cleft palate [Unknown]
  - Congenital anomaly [Unknown]
  - Middle ear disorder [Unknown]
  - Eustachian tube dysfunction [Unknown]
  - Congenital torticollis [Unknown]
  - Effusion [Unknown]
  - Pyrexia [Unknown]
  - Pain [Unknown]
  - Plagiocephaly [Unknown]
  - Anhedonia [Unknown]
  - Emotional distress [Unknown]
  - Vestibular disorder [Unknown]
  - Ill-defined disorder [Unknown]

NARRATIVE: CASE EVENT DATE: 201702
